FAERS Safety Report 4626645-1 (Version None)
Quarter: 2005Q1

REPORT INFORMATION
  Report Type: 
  Country: None (occurrence: None)
  Receive Date: 20050330
  Receipt Date: 20050318
  Transmission Date: 20050727
  Serious: Yes (Other)
  Sender: FDA-Public Use
  Company Number: 200503IM000088

PATIENT
  Sex: Male

DRUGS (3)
  1. INFERGEN [Suspect]
     Indication: HEPATITIS C
     Dosage: 15 UG, QD
     Dates: start: 20050101
  2. ACTIMMUNE [Suspect]
     Indication: HEPATITIS C
     Dosage: 50 UG, TIW
     Dates: start: 20050101
  3. RIBAVIRIN [Concomitant]

REACTIONS (1)
  - HEPATIC ENZYME INCREASED [None]
